FAERS Safety Report 24050177 (Version 1)
Quarter: 2024Q3

REPORT INFORMATION
  Report Type: Spontaneous
  Country: FR (occurrence: FR)
  Receive Date: 20240704
  Receipt Date: 20240704
  Transmission Date: 20241016
  Serious: Yes (Hospitalization)
  Sender: TEVA
  Company Number: None

PATIENT
  Age: 27 Year
  Sex: Female
  Weight: 41 kg

DRUGS (3)
  1. FLUCONAZOLE [Suspect]
     Active Substance: FLUCONAZOLE
     Indication: Intervertebral discitis
     Dosage: 400MG/DAY MONDAY + WEDNESDAY + FRIDAY?200MG/D TUESDAY + THURSDAY + SATURDAY + SUNDAY SINCE 02.04.24
     Route: 048
     Dates: start: 20240304
  2. NEFOPAM HYDROCHLORIDE [Suspect]
     Active Substance: NEFOPAM HYDROCHLORIDE
     Indication: Back pain
     Route: 042
     Dates: start: 202402, end: 20240402
  3. CASPOFUNGIN [Suspect]
     Active Substance: CASPOFUNGIN
     Indication: Intervertebral discitis
     Dosage: CASPOFUNGIN BASE
     Route: 042
     Dates: start: 20240308, end: 20240417

REACTIONS (1)
  - Partial seizures [Recovered/Resolved]

NARRATIVE: CASE EVENT DATE: 20240403
